FAERS Safety Report 5182904-8 (Version None)
Quarter: 2006Q4

REPORT INFORMATION
  Report Type: 
  Country: None (occurrence: None)
  Receive Date: 20061220
  Receipt Date: 20061211
  Transmission Date: 20070319
  Serious: Yes (Death)
  Sender: FDA-Public Use
  Company Number: US-SANOFI-SYNTHELABO-A03200607390

PATIENT
  Sex: Male

DRUGS (5)
  1. FOSAMAX [Concomitant]
     Dosage: UNK
     Route: 048
  2. ASPIRIN [Concomitant]
     Route: 048
  3. PLAVIX [Suspect]
     Indication: DRUG USE FOR UNKNOWN INDICATION
     Route: 048
     Dates: start: 20040101
  4. PLENDIL [Concomitant]
     Dosage: UNK
     Route: 048
  5. LISINOPRIL [Concomitant]
     Dosage: UNK
     Route: 048

REACTIONS (1)
  - CARDIAC FAILURE [None]
